FAERS Safety Report 8657217 (Version 4)
Quarter: 2013Q1

REPORT INFORMATION
  Report Type: Spontaneous
  Country: BR (occurrence: BR)
  Receive Date: 20120710
  Receipt Date: 20130117
  Transmission Date: 20140127
  Serious: Yes (Other)
  Sender: FDA-Public Use
  Company Number: BR-AMGEN-BRASP2012040936

PATIENT
  Age: 43 Year
  Sex: Female
  Weight: 33 kg

DRUGS (7)
  1. ENBREL [Suspect]
     Indication: RHEUMATOID ARTHRITIS
     Dosage: 50 MG, QWK
     Route: 058
     Dates: end: 20120626
  2. VOLTAREN                           /00372301/ [Concomitant]
     Indication: PAIN
     Dosage: 50 MG, WHEN PAIN
  3. NEXIUM                             /01479303/ [Concomitant]
     Dosage: 20 MG, 1X/DAY
  4. CALCORT [Concomitant]
     Dosage: 6 MG, 1X/DAY
  5. ABLOK PLUS [Concomitant]
     Dosage: UNK UNK, QD ONCE DAILY
  6. CALCIUM VITAMIN D [Concomitant]
     Dosage: UNK UNK, QD ONCE DAILY
  7. BONVIVA [Concomitant]
     Dosage: ONCE MONTHLY

REACTIONS (2)
  - Eye haemorrhage [Unknown]
  - Retinal detachment [Unknown]
